FAERS Safety Report 6522233-0 (Version None)
Quarter: 2009Q4

REPORT INFORMATION
  Report Type: 
  Country: None (occurrence: None)
  Receive Date: 20091229
  Receipt Date: 20091229
  Transmission Date: 20100525
  Serious: No
  Sender: FDA-Public Use
  Company Number: None

PATIENT
  Age: 65 Year
  Sex: Male
  Weight: 52.7 kg

DRUGS (11)
  1. HEPARIN [Suspect]
     Indication: DEEP VEIN THROMBOSIS
     Dosage: 5000 U SQ Q8 HOURS
     Route: 058
     Dates: start: 20091017, end: 20091022
  2. HEPARIN [Suspect]
     Indication: PROPHYLAXIS
     Dosage: 5000 U SQ Q8 HOURS
     Route: 058
     Dates: start: 20091017, end: 20091022
  3. ASPIRIN [Concomitant]
  4. CLOPIDOGREL [Concomitant]
  5. GABAPENTIN [Concomitant]
  6. MIRTAZAPINE [Concomitant]
  7. MORPHINE [Concomitant]
  8. LANSOPRAZOLE [Concomitant]
  9. SIMVASTATIN [Concomitant]
  10. VANCOMYCIN [Concomitant]
  11. ZOSYN [Concomitant]

REACTIONS (2)
  - INJECTION SITE HAEMORRHAGE [None]
  - PROTHROMBIN TIME PROLONGED [None]
